FAERS Safety Report 13660825 (Version 2)
Quarter: 2017Q2

REPORT INFORMATION
  Report Type: Spontaneous
  Country: US (occurrence: US)
  Receive Date: 20170616
  Receipt Date: 20170622
  Transmission Date: 20170830
  Serious: Yes (Life-Threatening, Hospitalization, Other)
  Sender: FDA-Public Use
  Company Number: US-BAYER-2017-112505

PATIENT
  Sex: Male

DRUGS (4)
  1. PRECOSE [Concomitant]
     Active Substance: ACARBOSE
  2. GLIPIZIDE. [Concomitant]
     Active Substance: GLIPIZIDE
  3. METFORMIN [Concomitant]
     Active Substance: METFORMIN HYDROCHLORIDE
  4. BAYER ASPIRIN [Suspect]
     Active Substance: ASPIRIN
     Route: 048

REACTIONS (9)
  - Blood count abnormal [Not Recovered/Not Resolved]
  - Anaemia [Recovered/Resolved]
  - Gastrointestinal arteriovenous malformation [Unknown]
  - Diabetes mellitus inadequate control [Unknown]
  - Blood glucose abnormal [Unknown]
  - Gastrointestinal haemorrhage [Unknown]
  - Diarrhoea [Unknown]
  - Weight decreased [Unknown]
  - Blood iron abnormal [Not Recovered/Not Resolved]

NARRATIVE: CASE EVENT DATE: 2017
